FAERS Safety Report 23794722 (Version 1)
Quarter: 2024Q2

REPORT INFORMATION
  Report Type: Other
  Country: US (occurrence: None)
  Receive Date: 20240429
  Receipt Date: 20240429
  Transmission Date: 20240715
  Serious: Yes (Death)
  Sender: FDA-Public Use
  Company Number: US-ROCHE-3553017

PATIENT
  Age: 72 Year
  Sex: Female

DRUGS (2)
  1. EMICIZUMAB [Suspect]
     Active Substance: EMICIZUMAB
     Indication: Von Willebrand^s disease
     Dosage: WITH INDUCTION DOSING OF 3 MG/KG WEEKLY FOR 4 WEEKS, AND MAINTENANCE DOSE OF 3 MG/KG EVERY 2 WEEK
     Route: 042
     Dates: start: 202211
  2. EMICIZUMAB [Suspect]
     Active Substance: EMICIZUMAB
     Dosage: MAINTENANCE DOSE OF 3 MG/KG EVERY 2 WEEK
     Route: 042

REACTIONS (1)
  - Cerebral haemorrhage [Fatal]

NARRATIVE: CASE EVENT DATE: 20230601
